FAERS Safety Report 6126230-9 (Version None)
Quarter: 2009Q1

REPORT INFORMATION
  Report Type: 
  Country: None (occurrence: None)
  Receive Date: 20090320
  Receipt Date: 20090309
  Transmission Date: 20090719
  Serious: No
  Sender: FDA-Public Use
  Company Number: JAFRA14514

PATIENT
  Sex: Female
  Weight: 61 kg

DRUGS (3)
  1. NIZORAL [Suspect]
     Indication: DERMATOPHYTOSIS
     Route: 048
     Dates: start: 19910817, end: 19910825
  2. ACTRAPID [Concomitant]
     Indication: DIABETES MELLITUS
     Route: 065
  3. PROTOPHASE [Concomitant]
     Indication: DIABETES MELLITUS
     Route: 065

REACTIONS (1)
  - MULTIPLE CONGENITAL ABNORMALITIES [None]
